FAERS Safety Report 8497050-5 (Version None)
Quarter: 2012Q3

REPORT INFORMATION
  Report Type: 
  Country: None (occurrence: None)
  Receive Date: 20120709
  Receipt Date: 20120601
  Transmission Date: 20120928
  Serious: No
  Sender: FDA-Public Use
  Company Number: US-AMGEN-USASP2012011818

PATIENT
  Sex: Female

DRUGS (4)
  1. ENBREL [Suspect]
     Indication: PSORIATIC ARTHROPATHY
     Dosage: 50 MG, QWK
     Dates: start: 20111001
  2. TRAMADOL HCL [Concomitant]
     Dosage: UNK
  3. ENBREL [Suspect]
     Indication: PSORIASIS
  4. ETODOLAC [Concomitant]
     Dosage: UNK

REACTIONS (4)
  - DRUG EFFECT DECREASED [None]
  - HYPOAESTHESIA [None]
  - VISION BLURRED [None]
  - PARAESTHESIA [None]
